FAERS Safety Report 18913211 (Version 1)
Quarter: 2021Q1

REPORT INFORMATION
  Report Type: Spontaneous
  Country: CA (occurrence: CA)
  Receive Date: 20210219
  Receipt Date: 20210219
  Transmission Date: 20210420
  Serious: Yes (Hospitalization, Other)
  Sender: FDA-Public Use
  Company Number: CA-TEVA-2021-CA-1880649

PATIENT
  Age: 51 Year
  Sex: Male
  Weight: 80 kg

DRUGS (19)
  1. MESALAZINE [Suspect]
     Active Substance: MESALAMINE
     Indication: COLITIS ULCERATIVE
     Route: 048
  2. METHADONE [Concomitant]
     Active Substance: METHADONE HYDROCHLORIDE
     Dosage: 140 MILLIGRAM DAILY;
  3. MIDAZOLAM. [Concomitant]
     Active Substance: MIDAZOLAM
     Route: 042
  4. SOLU?MEDROL [Suspect]
     Active Substance: METHYLPREDNISOLONE SODIUM SUCCINATE
     Route: 042
  5. MESALAZINE [Suspect]
     Active Substance: MESALAMINE
     Route: 048
  6. MESALAZINE [Suspect]
     Active Substance: MESALAMINE
     Route: 065
  7. SOLU?MEDROL [Suspect]
     Active Substance: METHYLPREDNISOLONE SODIUM SUCCINATE
     Indication: CONDITION AGGRAVATED
     Route: 065
  8. TIOTROPIUM BROMIDE [Concomitant]
     Active Substance: TIOTROPIUM BROMIDE
     Dosage: 1 DOSAGE FORMS DAILY;
  9. MESALAZINE [Suspect]
     Active Substance: MESALAMINE
     Indication: CONDITION AGGRAVATED
     Route: 065
  10. MEZAVANT ALSO KNOWN AS MESALAMINE [Concomitant]
     Active Substance: MESALAMINE
     Dosage: 4.8 GRAM DAILY;
  11. FENTANYL. [Concomitant]
     Active Substance: FENTANYL
     Route: 042
  12. VENTOLIN [Concomitant]
     Active Substance: ALBUTEROL SULFATE
  13. FLOVENT [Concomitant]
     Active Substance: FLUTICASONE PROPIONATE
     Dosage: 4 DOSAGE FORMS DAILY;
  14. MIRTAZAPINE. [Concomitant]
     Active Substance: MIRTAZAPINE
     Dosage: 15 MILLIGRAM DAILY;
  15. PANTOLOC [PANTOPRAZOLE] [Concomitant]
     Active Substance: PANTOPRAZOLE SODIUM
     Dosage: 40 MILLIGRAM DAILY;
  16. SOLU?MEDROL [Suspect]
     Active Substance: METHYLPREDNISOLONE SODIUM SUCCINATE
     Indication: COLITIS ULCERATIVE
     Route: 065
  17. SOLU?MEDROL [Suspect]
     Active Substance: METHYLPREDNISOLONE SODIUM SUCCINATE
     Route: 042
  18. GABAPENTIN. [Concomitant]
     Active Substance: GABAPENTIN
     Dosage: 3600 MILLIGRAM DAILY;
  19. INFLIXIMAB [Concomitant]
     Active Substance: INFLIXIMAB
     Indication: COLITIS ULCERATIVE
     Route: 042

REACTIONS (3)
  - Pneumocystis jirovecii pneumonia [Unknown]
  - Colitis ulcerative [Unknown]
  - Drug ineffective [Unknown]
